FAERS Safety Report 8057523-6 (Version None)
Quarter: 2012Q1

REPORT INFORMATION
  Report Type: 
  Country: None (occurrence: None)
  Receive Date: 20120119
  Receipt Date: 20120110
  Transmission Date: 20120608
  Serious: Yes (Other)
  Sender: FDA-Public Use
  Company Number: BR-ASTRAZENECA-2012SE02260

PATIENT
  Age: 63 Year
  Sex: Male
  Weight: 98 kg

DRUGS (3)
  1. ATORVASTATIN [Concomitant]
     Indication: HYPERCHOLESTEROLAEMIA
     Route: 048
     Dates: start: 20040101
  2. ASPIRIN [Concomitant]
     Route: 048
     Dates: start: 20090101
  3. ATACAND HCT [Suspect]
     Indication: HYPERTENSION
     Dosage: 16/12.5 MG DAILY
     Route: 048
     Dates: start: 20040101

REACTIONS (8)
  - BLOOD PRESSURE INCREASED [None]
  - VISUAL IMPAIRMENT [None]
  - DIABETES MELLITUS [None]
  - DIZZINESS [None]
  - DRUG INEFFECTIVE [None]
  - FLATULENCE [None]
  - WEIGHT INCREASED [None]
  - ABDOMINAL PAIN [None]
